FAERS Safety Report 5066469-7 (Version None)
Quarter: 2006Q3

REPORT INFORMATION
  Report Type: 
  Country: None (occurrence: None)
  Receive Date: 20060728
  Receipt Date: 20060718
  Transmission Date: 20061208
  Serious: Yes (Hospitalization, Disabling)
  Sender: FDA-Public Use
  Company Number: 200614331BWH

PATIENT
  Sex: Female

DRUGS (1)
  1. CIPRO [Suspect]
     Indication: CYSTITIS

REACTIONS (5)
  - BLINDNESS [None]
  - CONVULSION [None]
  - EMOTIONAL DISTRESS [None]
  - INTRACRANIAL PRESSURE INCREASED [None]
  - MENTAL DISORDER [None]
